FAERS Safety Report 24312569 (Version 2)
Quarter: 2024Q3

REPORT INFORMATION
  Report Type: Spontaneous
  Country: US (occurrence: US)
  Receive Date: 20240912
  Receipt Date: 20240917
  Transmission Date: 20241017
  Serious: No
  Sender: PFIZER
  Company Number: US-PFIZER INC-202400247883

PATIENT
  Age: 15 Year
  Sex: Male

DRUGS (1)
  1. GENOTROPIN [Suspect]
     Active Substance: SOMATROPIN
     Indication: Growth hormone deficiency
     Dosage: 1.4 MG, DAILY INJECTION
     Dates: start: 202310

REACTIONS (5)
  - Device material issue [Unknown]
  - Device breakage [Unknown]
  - Device mechanical issue [Unknown]
  - Device issue [Unknown]
  - Drug dose omission by device [Unknown]
